FAERS Safety Report 17087059 (Version 1)
Quarter: 2019Q4

REPORT INFORMATION
  Report Type: Spontaneous
  Country: US (occurrence: US)
  Receive Date: 20191101
  Receipt Date: 20191101
  Transmission Date: 20200122
  Serious: No
  Sender: FDA-Public Use
  Company Number: None

PATIENT
  Age: 77 Year
  Sex: Female
  Weight: 51.26 kg

DRUGS (16)
  1. OVER THE COUNTER EYE DROPS [Concomitant]
  2. BONE RESTORE WITH VITSMIN K2 [Concomitant]
  3. ALEVE [Concomitant]
     Active Substance: NAPROXEN SODIUM
  4. PEONY IMMUNE [Concomitant]
  5. THERATEARS [Concomitant]
     Active Substance: CARBOXYMETHYLCELLULOSE SODIUM
  6. SYNTHROID [Concomitant]
     Active Substance: LEVOTHYROXINE SODIUM
  7. VITAMIN D3 [Concomitant]
     Active Substance: CHOLECALCIFEROL
  8. HAIR,SKIN, NAILS WITH BIOTIN [Concomitant]
  9. VITAMIN B12 [Concomitant]
     Active Substance: CYANOCOBALAMIN
  10. XIIDRA [Suspect]
     Active Substance: LIFITEGRAST
     Indication: DRY EYE
     Dosage: ?          OTHER FREQUENCY:TWICE A DAY ;?
     Dates: start: 20190927, end: 20190927
  11. MULTIVITAMINS [Concomitant]
     Active Substance: VITAMINS
  12. KRILL OIL [Concomitant]
     Active Substance: DIETARY SUPPLEMENT\KRILL OIL
  13. LUTEIN 40 MG [Concomitant]
  14. CRANBERRY 5000 MG [Concomitant]
  15. PREMARIN [Concomitant]
     Active Substance: ESTROGENS, CONJUGATED
  16. ALEVE [Concomitant]
     Active Substance: NAPROXEN SODIUM

REACTIONS (2)
  - Vision blurred [None]
  - Eye irritation [None]

NARRATIVE: CASE EVENT DATE: 20190927
